FAERS Safety Report 6443792-2 (Version None)
Quarter: 2009Q4

REPORT INFORMATION
  Report Type: 
  Country: None (occurrence: None)
  Receive Date: 20091117
  Receipt Date: 20091109
  Transmission Date: 20100525
  Serious: Yes (Hospitalization)
  Sender: FDA-Public Use
  Company Number: US-GENENTECH-283186

PATIENT

DRUGS (3)
  1. BEVACIZUMAB [Suspect]
     Indication: BREAST CANCER METASTATIC
     Dosage: 10 MG/KG, DAYS 1+15
     Route: 042
  2. GEMCITABINE [Suspect]
     Indication: BREAST CANCER METASTATIC
     Dosage: 1500 MG/M2, DAYS 1+15
     Route: 042
  3. PACLITAXEL [Suspect]
     Indication: BREAST CANCER METASTATIC
     Dosage: 150 MG/M2, DAYS 1+15
     Route: 042

REACTIONS (16)
  - CARDIAC TAMPONADE [None]
  - CATHETER SITE INFECTION [None]
  - CONVULSION [None]
  - DISEASE PROGRESSION [None]
  - DYSPNOEA [None]
  - FEBRILE NEUTROPENIA [None]
  - HAEMATOTOXICITY [None]
  - HAEMATURIA [None]
  - HYPERTENSION [None]
  - LEUKOPENIA [None]
  - NAUSEA [None]
  - NEUROPATHY PERIPHERAL [None]
  - NEUTROPENIA [None]
  - PROTEINURIA [None]
  - TRANSAMINASES INCREASED [None]
  - VOMITING [None]
